FAERS Safety Report 23396532 (Version 1)
Quarter: 2024Q1

REPORT INFORMATION
  Report Type: Spontaneous
  Country: CA (occurrence: CA)
  Receive Date: 20240112
  Receipt Date: 20240112
  Transmission Date: 20240410
  Serious: Yes (Other)
  Sender: FDA-Public Use
  Company Number: CA-APOTEX-2024AP000838

PATIENT
  Sex: Male

DRUGS (6)
  1. QUETIAPINE [Suspect]
     Active Substance: QUETIAPINE
     Indication: Bipolar disorder
     Dosage: UNK UNK, Q.H.S., 25-100 MG
     Route: 048
  2. QUETIAPINE [Suspect]
     Active Substance: QUETIAPINE
     Indication: Depressed mood
  3. QUETIAPINE [Suspect]
     Active Substance: QUETIAPINE
     Indication: Insomnia
  4. ARIPIPRAZOLE [Suspect]
     Active Substance: ARIPIPRAZOLE
     Indication: Bipolar disorder
     Dosage: UNK
     Route: 048
  5. ARIPIPRAZOLE [Suspect]
     Active Substance: ARIPIPRAZOLE
     Indication: Depressed mood
  6. ARIPIPRAZOLE [Suspect]
     Active Substance: ARIPIPRAZOLE
     Indication: Insomnia

REACTIONS (8)
  - Nicotine dependence [Recovering/Resolving]
  - Condition aggravated [Recovering/Resolving]
  - Substance use disorder [Recovering/Resolving]
  - Apathy [Unknown]
  - Depressed mood [Unknown]
  - Off label use [Unknown]
  - Libido decreased [Unknown]
  - Sedation [Unknown]
